FAERS Safety Report 20818119 (Version 1)
Quarter: 2022Q2

REPORT INFORMATION
  Report Type: Spontaneous
  Country: US (occurrence: US)
  Receive Date: 20220512
  Receipt Date: 20220512
  Transmission Date: 20220720
  Serious: No
  Sender: FDA-Public Use
  Company Number: US-PFIZER INC-202200010434

PATIENT
  Age: 73 Year
  Sex: Female
  Weight: 97.07 kg

DRUGS (2)
  1. VERAPAMIL HCL [Suspect]
     Active Substance: VERAPAMIL HYDROCHLORIDE
     Indication: Supraventricular tachycardia
     Dosage: UNK
  2. SYNTHROID [Concomitant]
     Active Substance: LEVOTHYROXINE SODIUM
     Dosage: (TAKING IT OFF AND ON SINCE SHE WAS REAL YOUNG)

REACTIONS (3)
  - Chest pain [Recovered/Resolved]
  - Heart rate increased [Unknown]
  - Drug ineffective [Unknown]
